FAERS Safety Report 8691196 (Version 2)
Quarter: 2012Q4

REPORT INFORMATION
  Report Type: Spontaneous
  Country: US (occurrence: None)
  Receive Date: 20120712
  Receipt Date: 20121019
  Transmission Date: 20130627
  Serious: Yes (Hospitalization)
  Sender: FDA-Public Use
  Company Number: ALK_02701_2012

PATIENT
  Age: 46 Year
  Sex: Male
  Weight: 54 kg

DRUGS (3)
  1. VIVITROL (VIVITROL_NDA) INJECTION, 380MG [Suspect]
     Indication: ALCOHOLISM
     Dosage: (380 MG 1X/MONTH INTRAMUSCULAR)
     Route: 030
     Dates: start: 201205
  2. MEGACE [Concomitant]
  3. LEXAPRO [Concomitant]

REACTIONS (12)
  - Blood potassium decreased [None]
  - Confusional state [None]
  - Hallucination [None]
  - Depression [None]
  - Poor personal hygiene [None]
  - Condition aggravated [None]
  - Social avoidant behaviour [None]
  - Weight decreased [None]
  - Hypophagia [None]
  - Hypomagnesaemia [None]
  - Urinary tract infection [None]
  - Job dissatisfaction [None]
